FAERS Safety Report 4914825-7 (Version None)
Quarter: 2006Q1

REPORT INFORMATION
  Report Type: 
  Country: None (occurrence: None)
  Receive Date: 20060113
  Receipt Date: 20051024
  Transmission Date: 20060701
  Serious: No
  Sender: FDA-Public Use
  Company Number: 2005SP003654

PATIENT
  Age: 72 Year
  Sex: Male
  Weight: 59.4212 kg

DRUGS (16)
  1. LUNESTA [Suspect]
     Indication: MIDDLE INSOMNIA
     Dosage: 2 MG;HS;ORAL
     Route: 048
     Dates: start: 20051001, end: 20051001
  2. NEURONTIN [Concomitant]
  3. METHYLIN [Concomitant]
  4. TOLTERODINE [Concomitant]
  5. HYDROXYZINE [Concomitant]
  6. CYMBALTA [Concomitant]
  7. LEVAQUIN [Concomitant]
  8. GLYBURIDE [Concomitant]
  9. FOSAMAX [Concomitant]
  10. CLONAZEPAM [Concomitant]
  11. ATORVASTATIN CALCIUM [Concomitant]
  12. FOLIC ACID [Concomitant]
  13. SALICYLIC ACID [Concomitant]
  14. TRAZODONE HCL [Concomitant]
  15. MORPHINE SULFATE [Concomitant]
  16. ^ANATOL^ [Concomitant]

REACTIONS (2)
  - HANGOVER [None]
  - HEADACHE [None]
